FAERS Safety Report 15255855 (Version 1)
Quarter: 2018Q3

REPORT INFORMATION
  Report Type: Spontaneous
  Country: EG (occurrence: EG)
  Receive Date: 20180808
  Receipt Date: 20180808
  Transmission Date: 20181010
  Serious: Yes (Death, Other)
  Sender: FDA-Public Use
  Company Number: EG-SA-2018SA213114

PATIENT
  Age: 8 Year
  Sex: Female
  Weight: 14.5 kg

DRUGS (4)
  1. VITAMIN D [ERGOCALCIFEROL] [Concomitant]
     Indication: BONE DISORDER
     Dosage: 500 U, QD
     Dates: start: 20110621
  2. CEREZYME [Suspect]
     Active Substance: IMIGLUCERASE
     Indication: GAUCHER^S DISEASE TYPE III
     Dosage: 60 UNITS/KG, QOW
     Route: 041
     Dates: start: 20160510, end: 20170606
  3. CALCIUM [Concomitant]
     Active Substance: CALCIUM
     Indication: BONE DISORDER
     Dosage: 25 MG, QD
     Dates: start: 20110621
  4. LEVETIRACETAM. [Concomitant]
     Active Substance: LEVETIRACETAM
     Indication: EPILEPSY
     Dosage: 300 MG, BID
     Dates: start: 20160625

REACTIONS (1)
  - Status epilepticus [Fatal]

NARRATIVE: CASE EVENT DATE: 20170613
